FAERS Safety Report 12446040 (Version 1)
Quarter: 2016Q2

REPORT INFORMATION
  Report Type: Spontaneous
  Country: US (occurrence: US)
  Receive Date: 20160608
  Receipt Date: 20160608
  Transmission Date: 20160815
  Serious: Yes (Other)
  Sender: FDA-Public Use
  Company Number: US-ASTRAZENECA-2016SE58802

PATIENT
  Age: 76 Year
  Sex: Male

DRUGS (4)
  1. CASODEX [Suspect]
     Active Substance: BICALUTAMIDE
     Indication: PROSTATE CANCER
     Route: 048
  2. CASODEX [Suspect]
     Active Substance: BICALUTAMIDE
     Indication: COLON CANCER
     Route: 048
  3. XOFIGO [Concomitant]
     Active Substance: RADIUM RA-223 DICHLORIDE
  4. LUPRON [Concomitant]
     Active Substance: LEUPROLIDE ACETATE

REACTIONS (1)
  - Malignant neoplasm progression [Unknown]
